FAERS Safety Report 5920339-8 (Version None)
Quarter: 2008Q4

REPORT INFORMATION
  Report Type: 
  Country: None (occurrence: None)
  Receive Date: 20081016
  Receipt Date: 20081007
  Transmission Date: 20090506
  Serious: Yes (Other)
  Sender: FDA-Public Use
  Company Number: PHHY2008CA24278

PATIENT

DRUGS (3)
  1. RASILEZ [Suspect]
  2. ACE INHIBITOR NOS [Concomitant]
     Dosage: HIGH DOSE OF EITHER ACE OR ARB
  3. ANGIOTENSIN II ANTAGONISTS [Concomitant]
     Dosage: HIGH DOSE OF EITHER ACE OR ARB

REACTIONS (1)
  - ANAPHYLACTIC REACTION [None]
